FAERS Safety Report 12317507 (Version 3)
Quarter: 2019Q3

REPORT INFORMATION
  Report Type: Spontaneous
  Country: US (occurrence: US)
  Receive Date: 20160429
  Receipt Date: 20190806
  Transmission Date: 20191004
  Serious: No
  Sender: FDA-Public Use
  Company Number: US-PFIZER INC-2016229916

PATIENT
  Age: 63 Year
  Sex: Female
  Weight: 52.61 kg

DRUGS (8)
  1. TIMOPTIC [Concomitant]
     Active Substance: TIMOLOL MALEATE
     Indication: GLAUCOMA
     Dosage: ONE DROP IN EACH EYE; ONCE A DAY
  2. TIMOLOL MALEATE. [Concomitant]
     Active Substance: TIMOLOL MALEATE
     Dosage: 0.5% ONE DROP IN EACH EYE TWICE A DAY
  3. FEMARA [Concomitant]
     Active Substance: LETROZOLE
     Dosage: 25 MG, 1X/DAY
  4. HYDROCHLOROTHIAZIDE. [Concomitant]
     Active Substance: HYDROCHLOROTHIAZIDE
     Indication: BLOOD PRESSURE ABNORMAL
     Dosage: 25 MG ONE TABLET A DAY
  5. AMLODIPINE BESYLATE. [Concomitant]
     Active Substance: AMLODIPINE BESYLATE
     Indication: BLOOD PRESSURE MANAGEMENT
     Dosage: 10 MG, 1X/DAY
  6. IBRANCE [Suspect]
     Active Substance: PALBOCICLIB
     Indication: BREAST CANCER
     Dosage: 125 MG, 1X/DAY
     Route: 048
     Dates: start: 201510
  7. ALEVE [Concomitant]
     Active Substance: NAPROXEN SODIUM
     Indication: PAIN
     Dosage: UNK
  8. IBRANCE [Suspect]
     Active Substance: PALBOCICLIB
     Dosage: 75 MG, CYCLIC (75MG BY MOUTH DAILY FOR 14 DAYS ON AND 7 DAYS OFF)
     Route: 048
     Dates: start: 201510

REACTIONS (5)
  - Poor dental condition [Not Recovered/Not Resolved]
  - Gingival discomfort [Unknown]
  - Weight increased [Unknown]
  - Dental caries [Unknown]
  - Gingival swelling [Unknown]
